FAERS Safety Report 6891394-6 (Version None)
Quarter: 2010Q3

REPORT INFORMATION
  Report Type: 
  Country: None (occurrence: None)
  Receive Date: 20100731
  Receipt Date: 20061206
  Transmission Date: 20110219
  Serious: No
  Sender: FDA-Public Use
  Company Number: US-PFIZER INC-2006150675

PATIENT
  Sex: Female

DRUGS (8)
  1. DEPO-MEDROL [Suspect]
     Indication: CARPAL TUNNEL SYNDROME
     Route: 050
     Dates: start: 20061101
  2. LOVENOX [Concomitant]
  3. ADVAIR DISKUS 100/50 [Concomitant]
  4. HYDROMORPHONE [Concomitant]
  5. NITROGLYCERIN [Concomitant]
     Route: 060
  6. ESTROGENS SOL/INJ [Concomitant]
  7. SENOKOT [Concomitant]
  8. DOCUSATE [Concomitant]

REACTIONS (1)
  - APPLICATION SITE DISCOLOURATION [None]
